FAERS Safety Report 5326091-1 (Version None)
Quarter: 2007Q2

REPORT INFORMATION
  Report Type: 
  Country: None (occurrence: None)
  Receive Date: 20070220
  Receipt Date: 20061206
  Transmission Date: 20071010
  Serious: No
  Sender: FDA-Public Use
  Company Number: WAES 0612USA01060

PATIENT
  Age: 79 Year
  Sex: Male

DRUGS (2)
  1. TAB JANUVIA 50 MG [Suspect]
     Indication: DIABETES MELLITUS NON-INSULIN-DEPENDENT
     Dosage: 50 MG DAILY PO
     Route: 048
     Dates: start: 20061130, end: 20061206
  2. AMARYL [Concomitant]

REACTIONS (1)
  - BLOOD GLUCOSE INCREASED [None]
